FAERS Safety Report 4557960-8 (Version None)
Quarter: 2005Q1

REPORT INFORMATION
  Report Type: 
  Country: None (occurrence: None)
  Receive Date: 20050121
  Receipt Date: 20040310
  Transmission Date: 20050727
  Serious: No
  Sender: FDA-Public Use
  Company Number: US-BRISTOL-MYERS SQUIBB COMPANY-12529145

PATIENT
  Sex: Female

DRUGS (4)
  1. SERZONE [Suspect]
     Dosage: TAKEN 6 MONTHS PRIOR AND DURING HER PREGNANCY IN 2000.
     Route: 048
  2. WELLBUTRIN [Concomitant]
     Dosage: WELLBUTRIN XL
     Route: 048
  3. STRATTERA [Concomitant]
     Route: 048
  4. EFFEXOR [Concomitant]
     Route: 048

REACTIONS (1)
  - DRUG EXPOSURE DURING PREGNANCY [None]
